FAERS Safety Report 11623312 (Version 1)
Quarter: 2015Q4

REPORT INFORMATION
  Report Type: Spontaneous
  Country: US (occurrence: US)
  Receive Date: 20151013
  Receipt Date: 20151013
  Transmission Date: 20160304
  Serious: No
  Sender: FDA-Public Use
  Company Number: US-JNJFOC-20150421384

PATIENT
  Age: 7 Year
  Sex: Male
  Weight: 21.77 kg

DRUGS (2)
  1. CHILDRENS TYLENOL [Suspect]
     Active Substance: ACETAMINOPHEN
     Indication: PYREXIA
     Route: 048
  2. CHILDRENS TYLENOL [Suspect]
     Active Substance: ACETAMINOPHEN
     Indication: VOMITING
     Route: 048

REACTIONS (3)
  - Off label use [Unknown]
  - Drug dispensing error [Unknown]
  - Expired product administered [Unknown]
